FAERS Safety Report 20086200 (Version 1)
Quarter: 2021Q4

REPORT INFORMATION
  Report Type: Spontaneous
  Country: US (occurrence: US)
  Receive Date: 20211118
  Receipt Date: 20211118
  Transmission Date: 20220303
  Serious: No
  Sender: FDA-Public Use
  Company Number: US-ONCOPEPPR-00819

PATIENT
  Sex: Male

DRUGS (1)
  1. PEPAXTO [Suspect]
     Active Substance: MELPHALAN FLUFENAMIDE

REACTIONS (2)
  - Product reconstitution quality issue [Unknown]
  - Expired product administered [Unknown]

NARRATIVE: CASE EVENT DATE: 20210603
